FAERS Safety Report 11227544 (Version 1)
Quarter: 2015Q2

REPORT INFORMATION
  Report Type: Spontaneous
  Country: US (occurrence: None)
  Receive Date: 20150626
  Receipt Date: 20150626
  Transmission Date: 20150821
  Serious: Yes (Disabling)
  Sender: FDA-Public Use
  Company Number: None

PATIENT
  Age: 18 Year
  Sex: Female
  Weight: 81.65 kg

DRUGS (2)
  1. NUVARING [Suspect]
     Active Substance: ETHINYL ESTRADIOL\ETONOGESTREL
     Indication: MENSTRUAL CYCLE MANAGEMENT
     Dates: start: 20150605, end: 20150624
  2. NUVARING [Suspect]
     Active Substance: ETHINYL ESTRADIOL\ETONOGESTREL
     Indication: CONTRACEPTION
     Dates: start: 20150605, end: 20150624

REACTIONS (11)
  - Ear pain [None]
  - Pain [None]
  - Headache [None]
  - Asthenia [None]
  - Cough [None]
  - Oropharyngeal pain [None]
  - Chills [None]
  - Mood swings [None]
  - Libido decreased [None]
  - Oral herpes [None]
  - Muscle spasms [None]

NARRATIVE: CASE EVENT DATE: 20150613
